FAERS Safety Report 6960024-7 (Version None)
Quarter: 2010Q3

REPORT INFORMATION
  Report Type: 
  Country: None (occurrence: None)
  Receive Date: 20100901
  Receipt Date: 20100819
  Transmission Date: 20110219
  Serious: No
  Sender: FDA-Public Use
  Company Number: US-BAYER-201031392NA

PATIENT
  Age: 33 Year
  Sex: Female
  Weight: 134 kg

DRUGS (4)
  1. MIRENA [Suspect]
     Indication: CONTRACEPTION
     Route: 015
     Dates: start: 20070815
  2. HUMALOG PEN [Concomitant]
     Dosage: 100 UNIT/ML- DOSES DEPENDENT ON BLOOD SUGAR
     Route: 058
  3. HUMALIN N PEN [Concomitant]
     Dosage: 100 UNIT/ML- DOSES DEPENDENT ON BLOOD SUGAR
     Route: 058
  4. PRIMACARE [Concomitant]
     Dosage: 27-1 MG
     Route: 048

REACTIONS (4)
  - BACK PAIN [None]
  - GENITAL HAEMORRHAGE [None]
  - UTERINE SPASM [None]
  - VAGINAL INFECTION [None]
